FAERS Safety Report 20974237 (Version 1)
Quarter: 2022Q2

REPORT INFORMATION
  Report Type: Spontaneous
  Country: ZA (occurrence: ZA)
  Receive Date: 20220617
  Receipt Date: 20220617
  Transmission Date: 20220721
  Serious: Yes (Hospitalization)
  Sender: FDA-Public Use
  Company Number: ZA-STRIDES ARCOLAB LIMITED-2022SP007330

PATIENT
  Age: 65 Year
  Sex: Female

DRUGS (2)
  1. DEXAMETHASONE [Suspect]
     Active Substance: DEXAMETHASONE
     Indication: COVID-19 pneumonia
     Dosage: 8 MILLIGRAM, BID
     Route: 065
     Dates: start: 202006
  2. ENOXAPARIN [Concomitant]
     Active Substance: ENOXAPARIN
     Indication: Anticoagulant therapy
     Dosage: UNK
     Route: 065
     Dates: start: 202006

REACTIONS (3)
  - Insulin resistance [Unknown]
  - Sepsis [Unknown]
  - Off label use [Unknown]

NARRATIVE: CASE EVENT DATE: 20200601
